FAERS Safety Report 25190049 (Version 2)
Quarter: 2025Q2

REPORT INFORMATION
  Report Type: Spontaneous
  Country: CA (occurrence: CA)
  Receive Date: 20250411
  Receipt Date: 20250508
  Transmission Date: 20250717
  Serious: Yes (Death, Life-Threatening, Hospitalization, Disabling, Congenital Anomaly, Other)
  Sender: GALDERMA
  Company Number: CA-GALDERMA-CA2025005010

PATIENT

DRUGS (201)
  1. METRONIDAZOLE [Suspect]
     Active Substance: METRONIDAZOLE
     Indication: Bacterial infection
     Route: 065
  2. METRONIDAZOLE [Suspect]
     Active Substance: METRONIDAZOLE
     Indication: Intentional product misuse
  3. METRONIDAZOLE [Suspect]
     Active Substance: METRONIDAZOLE
     Indication: Off label use
  4. ACETAMINOPHEN [Concomitant]
     Active Substance: ACETAMINOPHEN
     Indication: Analgesic therapy
  5. ACETAMINOPHEN [Concomitant]
     Active Substance: ACETAMINOPHEN
     Indication: Off label use
     Route: 065
  6. ACETAMINOPHEN [Concomitant]
     Active Substance: ACETAMINOPHEN
     Indication: Intentional product misuse
     Route: 065
  7. ACETAMINOPHEN [Concomitant]
     Active Substance: ACETAMINOPHEN
     Route: 065
  8. ACETAMINOPHEN [Concomitant]
     Active Substance: ACETAMINOPHEN
     Route: 065
  9. ACETAMINOPHEN [Concomitant]
     Active Substance: ACETAMINOPHEN
     Route: 065
  10. ACETAMINOPHEN [Concomitant]
     Active Substance: ACETAMINOPHEN
     Indication: Analgesic therapy
     Route: 048
  11. ACETAMINOPHEN [Concomitant]
     Active Substance: ACETAMINOPHEN
     Indication: Off label use
     Route: 048
  12. ACETAMINOPHEN [Concomitant]
     Active Substance: ACETAMINOPHEN
     Indication: Intentional product misuse
     Route: 048
  13. ACETAMINOPHEN [Concomitant]
     Active Substance: ACETAMINOPHEN
     Route: 048
  14. ACETAMINOPHEN [Concomitant]
     Active Substance: ACETAMINOPHEN
     Route: 048
  15. ACETAMINOPHEN [Concomitant]
     Active Substance: ACETAMINOPHEN
     Route: 048
  16. ACETAMINOPHEN [Concomitant]
     Active Substance: ACETAMINOPHEN
     Indication: Analgesic therapy
     Route: 042
  17. ACETAMINOPHEN [Concomitant]
     Active Substance: ACETAMINOPHEN
     Indication: Off label use
  18. ACETAMINOPHEN [Concomitant]
     Active Substance: ACETAMINOPHEN
     Indication: Intentional product misuse
  19. ALLOPURINOL [Concomitant]
     Active Substance: ALLOPURINOL
     Indication: Blood uric acid increased
     Route: 048
  20. ALLOPURINOL [Concomitant]
     Active Substance: ALLOPURINOL
     Route: 048
  21. AMLODIPINE BESYLATE [Concomitant]
     Active Substance: AMLODIPINE BESYLATE
     Indication: Ventricular fibrillation
     Route: 065
  22. AMLODIPINE BESYLATE [Concomitant]
     Active Substance: AMLODIPINE BESYLATE
     Indication: Drug therapy
     Route: 042
  23. AMLODIPINE BESYLATE [Concomitant]
     Active Substance: AMLODIPINE BESYLATE
     Route: 065
  24. AMLODIPINE BESYLATE [Concomitant]
     Active Substance: AMLODIPINE BESYLATE
     Route: 042
  25. ALUMINUM HYDROXIDE\MAGNESIUM HYDROXIDE [Concomitant]
     Active Substance: ALUMINUM HYDROXIDE\MAGNESIUM HYDROXIDE
     Indication: Constipation
     Route: 065
  26. ALUMINUM HYDROXIDE\MAGNESIUM HYDROXIDE [Concomitant]
     Active Substance: ALUMINUM HYDROXIDE\MAGNESIUM HYDROXIDE
     Indication: Intentional product misuse
  27. ALUMINUM HYDROXIDE\MAGNESIUM HYDROXIDE [Concomitant]
     Active Substance: ALUMINUM HYDROXIDE\MAGNESIUM HYDROXIDE
     Indication: Constipation
     Route: 054
  28. ALUMINUM HYDROXIDE\MAGNESIUM HYDROXIDE [Concomitant]
     Active Substance: ALUMINUM HYDROXIDE\MAGNESIUM HYDROXIDE
     Indication: Intentional product misuse
  29. BETAMETHASONE [Concomitant]
     Active Substance: BETAMETHASONE
     Indication: Swelling
     Route: 061
  30. BETAMETHASONE [Concomitant]
     Active Substance: BETAMETHASONE
     Indication: Off label use
     Route: 061
  31. BISACODYL [Concomitant]
     Active Substance: BISACODYL
     Indication: Ventricular fibrillation
     Route: 054
  32. BISACODYL [Concomitant]
     Active Substance: BISACODYL
     Indication: Constipation
     Route: 065
  33. BISACODYL [Concomitant]
     Active Substance: BISACODYL
     Indication: Drug therapy
  34. CALCIUM CARBONATE [Concomitant]
     Active Substance: CALCIUM CARBONATE
     Indication: Vitamin supplementation
     Route: 065
  35. CEFTRIAXONE SODIUM [Concomitant]
     Active Substance: CEFTRIAXONE SODIUM
     Indication: Bacterial infection
     Route: 042
  36. COLCHICINE [Concomitant]
     Active Substance: COLCHICINE
     Indication: Product used for unknown indication
     Route: 065
  37. DIPYRONE [Concomitant]
     Active Substance: DIPYRONE
     Indication: Vitamin supplementation
     Route: 042
  38. DISTIGMINE BROMIDE [Concomitant]
     Active Substance: DISTIGMINE BROMIDE
     Indication: Dyspnoea
     Route: 048
  39. DOBUTAMINE [Concomitant]
     Active Substance: DOBUTAMINE HYDROCHLORIDE
     Indication: Cardiogenic shock
     Route: 042
  40. DEXILANT [Concomitant]
     Active Substance: DEXLANSOPRAZOLE
     Indication: Product used for unknown indication
     Route: 048
  41. DEXLANSOPRAZOLE [Concomitant]
     Active Substance: DEXLANSOPRAZOLE
     Indication: Product used for unknown indication
     Route: 065
  42. DEXLANSOPRAZOLE [Concomitant]
     Active Substance: DEXLANSOPRAZOLE
     Route: 065
  43. DEXLANSOPRAZOLE [Concomitant]
     Active Substance: DEXLANSOPRAZOLE
     Route: 065
  44. FURAZOLIDONE [Concomitant]
     Active Substance: FURAZOLIDONE
     Indication: Product used for unknown indication
     Route: 042
  45. GABAPENTIN [Concomitant]
     Active Substance: GABAPENTIN
     Indication: Neuralgia
     Route: 048
  46. GABAPENTIN [Concomitant]
     Active Substance: GABAPENTIN
     Indication: Bacterial infection
     Route: 065
  47. GABAPENTIN [Concomitant]
     Active Substance: GABAPENTIN
     Indication: Off label use
  48. GABAPENTIN [Concomitant]
     Active Substance: GABAPENTIN
     Indication: Intentional product misuse
  49. DEXTROSE [Concomitant]
     Active Substance: DEXTROSE MONOHYDRATE
     Indication: Nutritional supplementation
     Route: 065
  50. DEXTROSE [Concomitant]
     Active Substance: DEXTROSE MONOHYDRATE
     Route: 065
  51. DEXTROSE [Concomitant]
     Active Substance: DEXTROSE MONOHYDRATE
     Route: 042
  52. DEXTROSE [Concomitant]
     Active Substance: DEXTROSE MONOHYDRATE
     Route: 054
  53. DEXTROSE\SODIUM CHLORIDE [Concomitant]
     Active Substance: DEXTROSE\SODIUM CHLORIDE
     Indication: Nutritional supplementation
     Route: 042
  54. DEXTROSE\SODIUM CHLORIDE [Concomitant]
     Active Substance: DEXTROSE\SODIUM CHLORIDE
     Route: 042
  55. DEXTROSE\SODIUM CHLORIDE [Concomitant]
     Active Substance: DEXTROSE\SODIUM CHLORIDE
     Route: 042
  56. DEXTROSE\SODIUM CHLORIDE [Concomitant]
     Active Substance: DEXTROSE\SODIUM CHLORIDE
     Route: 042
  57. HEPARIN CALCIUM [Concomitant]
     Active Substance: HEPARIN CALCIUM
     Indication: Anticoagulant therapy
     Route: 065
  58. HYDROCORTISONE [Concomitant]
     Active Substance: HYDROCORTISONE
     Indication: Angioedema
     Route: 065
  59. HYDROMORPHONE [Concomitant]
     Active Substance: HYDROMORPHONE
     Indication: Analgesic therapy
     Route: 058
  60. HYDROMORPHONE [Concomitant]
     Active Substance: HYDROMORPHONE
     Indication: Off label use
  61. HYDROMORPHONE [Concomitant]
     Active Substance: HYDROMORPHONE
     Indication: Intentional product misuse
  62. HYDROMORPHONE [Concomitant]
     Active Substance: HYDROMORPHONE
     Indication: Analgesic therapy
     Route: 058
  63. HYDROMORPHONE [Concomitant]
     Active Substance: HYDROMORPHONE
     Indication: Off label use
     Route: 058
  64. HYDROMORPHONE [Concomitant]
     Active Substance: HYDROMORPHONE
     Indication: Intentional product misuse
  65. INSULIN ASPART [Concomitant]
     Active Substance: INSULIN ASPART
     Indication: Diabetes mellitus
     Route: 058
  66. METRONIDAZOLE [Concomitant]
     Active Substance: METRONIDAZOLE
     Indication: Bacterial infection
     Route: 065
  67. METRONIDAZOLE [Concomitant]
     Active Substance: METRONIDAZOLE
     Route: 065
  68. METRONIDAZOLE [Concomitant]
     Active Substance: METRONIDAZOLE
     Route: 048
  69. METRONIDAZOLE [Concomitant]
     Active Substance: METRONIDAZOLE
     Route: 048
  70. METRONIDAZOLE [Concomitant]
     Active Substance: METRONIDAZOLE
     Route: 048
  71. METRONIDAZOLE [Concomitant]
     Active Substance: METRONIDAZOLE
     Route: 048
  72. METRONIDAZOLE [Concomitant]
     Active Substance: METRONIDAZOLE
     Route: 048
  73. METRONIDAZOLE [Concomitant]
     Active Substance: METRONIDAZOLE
     Indication: Bacterial infection
     Route: 048
  74. METRONIDAZOLE [Concomitant]
     Active Substance: METRONIDAZOLE
     Route: 048
  75. METRONIDAZOLE [Concomitant]
     Active Substance: METRONIDAZOLE
     Route: 048
  76. METRONIDAZOLE [Concomitant]
     Active Substance: METRONIDAZOLE
     Route: 048
  77. METRONIDAZOLE [Concomitant]
     Active Substance: METRONIDAZOLE
     Route: 048
  78. NOREPINEPHRINE [Concomitant]
     Active Substance: NOREPINEPHRINE
     Indication: Stress
     Route: 042
  79. NOREPINEPHRINE [Concomitant]
     Active Substance: NOREPINEPHRINE
     Indication: Off label use
  80. NOREPINEPHRINE [Concomitant]
     Active Substance: NOREPINEPHRINE
     Indication: Intentional product misuse
  81. NOREPINEPHRINE [Concomitant]
     Active Substance: NOREPINEPHRINE
     Indication: Stress
     Route: 065
  82. NOREPINEPHRINE [Concomitant]
     Active Substance: NOREPINEPHRINE
     Indication: Off label use
     Route: 065
  83. NOREPINEPHRINE [Concomitant]
     Active Substance: NOREPINEPHRINE
     Indication: Intentional product misuse
  84. ONDANSETRON [Concomitant]
     Active Substance: ONDANSETRON
     Indication: Vomiting
     Route: 042
  85. ONDANSETRON [Concomitant]
     Active Substance: ONDANSETRON
     Indication: Nausea
     Route: 042
  86. ONDANSETRON [Concomitant]
     Active Substance: ONDANSETRON
     Indication: Off label use
     Route: 042
  87. ONDANSETRON [Concomitant]
     Active Substance: ONDANSETRON
     Route: 042
  88. ONDANSETRON [Concomitant]
     Active Substance: ONDANSETRON
     Route: 042
  89. ONDANSETRON [Concomitant]
     Active Substance: ONDANSETRON
     Route: 042
  90. ONDANSETRON [Concomitant]
     Active Substance: ONDANSETRON
     Route: 042
  91. ONDANSETRON [Concomitant]
     Active Substance: ONDANSETRON
     Route: 042
  92. ONDANSETRON [Concomitant]
     Active Substance: ONDANSETRON
     Route: 042
  93. ONDANSETRON [Concomitant]
     Active Substance: ONDANSETRON
     Route: 042
  94. ONDANSETRON [Concomitant]
     Active Substance: ONDANSETRON
     Route: 042
  95. ONDANSETRON [Concomitant]
     Active Substance: ONDANSETRON
     Route: 042
  96. ONDANSETRON [Concomitant]
     Active Substance: ONDANSETRON
     Indication: Vomiting
     Route: 065
  97. ONDANSETRON [Concomitant]
     Active Substance: ONDANSETRON
     Indication: Nausea
     Route: 065
  98. ONDANSETRON [Concomitant]
     Active Substance: ONDANSETRON
     Indication: Off label use
     Route: 065
  99. ONDANSETRON [Concomitant]
     Active Substance: ONDANSETRON
     Route: 065
  100. ONDANSETRON [Concomitant]
     Active Substance: ONDANSETRON
     Route: 065
  101. ONDANSETRON [Concomitant]
     Active Substance: ONDANSETRON
     Route: 065
  102. ONDANSETRON [Concomitant]
     Active Substance: ONDANSETRON
     Route: 065
  103. ONDANSETRON [Concomitant]
     Active Substance: ONDANSETRON
     Route: 065
  104. ONDANSETRON [Concomitant]
     Active Substance: ONDANSETRON
     Route: 065
  105. ONDANSETRON [Concomitant]
     Active Substance: ONDANSETRON
     Route: 065
  106. ONDANSETRON [Concomitant]
     Active Substance: ONDANSETRON
     Route: 065
  107. ONDANSETRON [Concomitant]
     Active Substance: ONDANSETRON
     Route: 065
  108. ONDANSETRON [Concomitant]
     Active Substance: ONDANSETRON
     Route: 065
  109. ONDANSETRON [Concomitant]
     Active Substance: ONDANSETRON
     Route: 065
  110. OSELTAMIVIR PHOSPHATE [Concomitant]
     Active Substance: OSELTAMIVIR PHOSPHATE
     Indication: Product used for unknown indication
     Route: 054
  111. PENICILLIN V [Concomitant]
     Active Substance: PENICILLIN V
     Indication: Product used for unknown indication
     Route: 065
  112. PHYTONADIONE [Concomitant]
     Active Substance: PHYTONADIONE
     Indication: Vitamin supplementation
     Route: 042
  113. PHYTONADIONE [Concomitant]
     Active Substance: PHYTONADIONE
     Indication: Off label use
     Route: 042
  114. PHYTONADIONE [Concomitant]
     Active Substance: PHYTONADIONE
     Route: 065
  115. PHYTONADIONE [Concomitant]
     Active Substance: PHYTONADIONE
     Route: 065
  116. PHYTONADIONE [Concomitant]
     Active Substance: PHYTONADIONE
     Route: 065
  117. POTASSIUM CHLORIDE [Concomitant]
     Active Substance: POTASSIUM CHLORIDE
     Indication: Constipation
     Route: 065
  118. POTASSIUM CHLORIDE [Concomitant]
     Active Substance: POTASSIUM CHLORIDE
     Route: 065
  119. POTASSIUM CHLORIDE [Concomitant]
     Active Substance: POTASSIUM CHLORIDE
     Route: 048
  120. POTASSIUM CHLORIDE [Concomitant]
     Active Substance: POTASSIUM CHLORIDE
     Route: 048
  121. PREVACID [Concomitant]
     Active Substance: LANSOPRAZOLE
     Indication: Gastric pH decreased
     Route: 065
  122. PREVACID [Concomitant]
     Active Substance: LANSOPRAZOLE
     Indication: Antacid therapy
     Route: 065
  123. PREVACID [Concomitant]
     Active Substance: LANSOPRAZOLE
     Indication: Off label use
     Route: 065
  124. PREVACID [Concomitant]
     Active Substance: LANSOPRAZOLE
     Indication: Intentional product misuse
     Route: 065
  125. PREVACID [Concomitant]
     Active Substance: LANSOPRAZOLE
     Route: 054
  126. PREVACID [Concomitant]
     Active Substance: LANSOPRAZOLE
     Indication: Antacid therapy
     Route: 065
  127. PREVACID [Concomitant]
     Active Substance: LANSOPRAZOLE
     Indication: Intentional product misuse
  128. PYRIDOXINE HYDROCHLORIDE [Concomitant]
     Active Substance: PYRIDOXINE HYDROCHLORIDE
     Indication: Vitamin supplementation
     Route: 048
  129. PYRIDOXINE HYDROCHLORIDE [Concomitant]
     Active Substance: PYRIDOXINE HYDROCHLORIDE
     Indication: Constipation
     Route: 065
  130. PYRIDOXINE HYDROCHLORIDE [Concomitant]
     Active Substance: PYRIDOXINE HYDROCHLORIDE
     Indication: Analgesic therapy
  131. RAMIPRIL [Concomitant]
     Active Substance: RAMIPRIL
     Indication: Prophylaxis
     Route: 048
  132. RAMIPRIL [Concomitant]
     Active Substance: RAMIPRIL
     Indication: Asthma
     Route: 065
  133. ALBUTEROL [Concomitant]
     Active Substance: ALBUTEROL
     Indication: Chronic obstructive pulmonary disease
     Route: 065
  134. ALBUTEROL [Concomitant]
     Active Substance: ALBUTEROL
     Indication: Prophylaxis
     Route: 065
  135. ALBUTEROL [Concomitant]
     Active Substance: ALBUTEROL
     Indication: Off label use
  136. ALBUTEROL [Concomitant]
     Active Substance: ALBUTEROL
     Indication: Intentional product misuse
  137. SIMVASTATIN [Concomitant]
     Active Substance: SIMVASTATIN
     Indication: Vitamin supplementation
     Route: 065
  138. SIMVASTATIN [Concomitant]
     Active Substance: SIMVASTATIN
     Indication: Blood cholesterol increased
     Route: 065
  139. SIMVASTATIN [Concomitant]
     Active Substance: SIMVASTATIN
     Indication: Off label use
     Route: 065
  140. SODIUM FERRIC GLUCONATE COMPLEX [Concomitant]
     Active Substance: SODIUM FERRIC GLUCONATE COMPLEX
     Indication: Iron deficiency
     Route: 042
  141. SODIUM FERRIC GLUCONATE COMPLEX [Concomitant]
     Active Substance: SODIUM FERRIC GLUCONATE COMPLEX
     Route: 042
  142. SODIUM FERRIC GLUCONATE COMPLEX [Concomitant]
     Active Substance: SODIUM FERRIC GLUCONATE COMPLEX
     Dosage: 1.25 MILLIGRAM, QWK, 1 EVERY 1 WEEK
     Route: 042
  143. SODIUM FERRIC GLUCONATE COMPLEX [Concomitant]
     Active Substance: SODIUM FERRIC GLUCONATE COMPLEX
     Dosage: 125 MILLIGRAM, QWK, 1 EVERY 1 WEEK
     Route: 042
  144. SODIUM PICOSULFATE [Concomitant]
     Active Substance: SODIUM PICOSULFATE
     Indication: Constipation
     Route: 054
  145. SODIUM PICOSULFATE [Concomitant]
     Active Substance: SODIUM PICOSULFATE
     Indication: Analgesic therapy
     Route: 054
  146. SODIUM ASCORBATE [Concomitant]
     Active Substance: SODIUM ASCORBATE
     Indication: Vitamin supplementation
     Route: 048
  147. SODIUM ASCORBATE [Concomitant]
     Active Substance: SODIUM ASCORBATE
     Indication: Constipation
     Route: 048
  148. SODIUM ASCORBATE [Concomitant]
     Active Substance: SODIUM ASCORBATE
     Route: 065
  149. SODIUM BICARBONATE [Concomitant]
     Active Substance: SODIUM BICARBONATE
     Indication: Nutritional supplementation
     Route: 065
  150. SODIUM CITRATE [Concomitant]
     Active Substance: SODIUM CITRATE
     Indication: Thrombosis
     Route: 065
  151. SODIUM CITRATE [Concomitant]
     Active Substance: SODIUM CITRATE
     Indication: Anticoagulant therapy
     Route: 065
  152. SODIUM CITRATE [Concomitant]
     Active Substance: SODIUM CITRATE
     Route: 065
  153. SODIUM CITRATE [Concomitant]
     Active Substance: SODIUM CITRATE
     Route: 065
  154. SODIUM CITRATE [Concomitant]
     Active Substance: SODIUM CITRATE
     Route: 065
  155. SODIUM CITRATE [Concomitant]
     Active Substance: SODIUM CITRATE
     Route: 065
  156. TELMISARTAN [Concomitant]
     Active Substance: TELMISARTAN
     Indication: Product used for unknown indication
     Route: 065
  157. THEOPHYLLINE [Concomitant]
     Active Substance: THEOPHYLLINE
     Indication: Chronic obstructive pulmonary disease
     Route: 065
  158. THEOPHYLLINE [Concomitant]
     Active Substance: THEOPHYLLINE
     Indication: Off label use
     Route: 065
  159. THEOPHYLLINE [Concomitant]
     Active Substance: THEOPHYLLINE
     Indication: Intentional product misuse
     Route: 065
  160. THEOPHYLLINE [Concomitant]
     Active Substance: THEOPHYLLINE
     Route: 065
  161. VITAMIN C [Concomitant]
     Active Substance: ASCORBIC ACID
     Indication: Vitamin supplementation
     Route: 048
  162. VITAMIN C [Concomitant]
     Active Substance: ASCORBIC ACID
     Indication: Constipation
     Route: 065
  163. VITAMIN C [Concomitant]
     Active Substance: ASCORBIC ACID
     Indication: Intentional product misuse
     Route: 065
  164. VITAMIN D3 [Concomitant]
     Active Substance: CHOLECALCIFEROL
     Indication: Product used for unknown indication
     Route: 065
  165. VITAMIN K1 [Concomitant]
     Active Substance: PHYTONADIONE
     Indication: Vitamin supplementation
     Route: 042
  166. VITAMIN K1 [Concomitant]
     Active Substance: PHYTONADIONE
     Route: 042
  167. VITAMIN K1 [Concomitant]
     Active Substance: PHYTONADIONE
     Route: 042
  168. VITAMIN K1 [Concomitant]
     Active Substance: PHYTONADIONE
     Route: 042
  169. VITAMIN K1 [Concomitant]
     Active Substance: PHYTONADIONE
     Route: 042
  170. VITAMIN K1 [Concomitant]
     Active Substance: PHYTONADIONE
     Route: 065
  171. VITAMIN K1 [Concomitant]
     Active Substance: PHYTONADIONE
     Route: 065
  172. WARFARIN SODIUM [Concomitant]
     Active Substance: WARFARIN SODIUM
     Indication: Thrombosis
     Route: 065
  173. WARFARIN SODIUM [Concomitant]
     Active Substance: WARFARIN SODIUM
     Indication: Off label use
     Route: 048
  174. WARFARIN SODIUM [Concomitant]
     Active Substance: WARFARIN SODIUM
     Indication: Intentional product misuse
     Route: 048
  175. Cortiment [Concomitant]
     Indication: Product used for unknown indication
     Route: 065
  176. CORTISONE [Concomitant]
     Active Substance: CORTISONE
     Indication: Product used for unknown indication
     Route: 065
  177. EFINACONAZOLE [Concomitant]
     Active Substance: EFINACONAZOLE
     Indication: Product used for unknown indication
     Route: 061
  178. IPRATROPIUM [Concomitant]
     Active Substance: IPRATROPIUM
     Indication: Sleep disorder therapy
     Route: 065
  179. IPRATROPIUM [Concomitant]
     Active Substance: IPRATROPIUM
     Indication: Dyspnoea
     Route: 065
  180. IPRATROPIUM BROMIDE [Concomitant]
     Active Substance: IPRATROPIUM BROMIDE
     Indication: Sleep disorder therapy
     Route: 065
  181. IPRATROPIUM BROMIDE [Concomitant]
     Active Substance: IPRATROPIUM BROMIDE
     Indication: Dyspnoea
     Route: 065
  182. IPRATROPIUM BROMIDE [Concomitant]
     Active Substance: IPRATROPIUM BROMIDE
     Indication: Off label use
     Route: 065
  183. IPRATROPIUM BROMIDE [Concomitant]
     Active Substance: IPRATROPIUM BROMIDE
     Indication: Intentional product misuse
  184. POLYETHYLENE GLYCOL 3350 [Concomitant]
     Active Substance: POLYETHYLENE GLYCOL 3350
     Indication: Off label use
     Route: 048
  185. POLYETHYLENE GLYCOL 3350 [Concomitant]
     Active Substance: POLYETHYLENE GLYCOL 3350
     Indication: Constipation
     Route: 042
  186. MESALAMINE [Concomitant]
     Active Substance: MESALAMINE
     Indication: Product used for unknown indication
     Route: 065
  187. NITROGLYCERIN [Concomitant]
     Active Substance: NITROGLYCERIN
     Indication: Product used for unknown indication
     Route: 065
  188. ALBUTEROL SULFATE [Concomitant]
     Active Substance: ALBUTEROL SULFATE
     Indication: Asthma
     Route: 065
  189. CALCIUM [Concomitant]
     Active Substance: CALCIUM
     Indication: Intentional product misuse
     Route: 065
  190. CALCIUM ASCORBATE [Concomitant]
     Active Substance: CALCIUM ASCORBATE
     Indication: Vitamin supplementation
     Route: 065
  191. CALCIUM ASCORBATE [Concomitant]
     Active Substance: CALCIUM ASCORBATE
     Indication: Product used for unknown indication
     Route: 065
  192. LANSOPRAZOLE [Concomitant]
     Active Substance: LANSOPRAZOLE
     Indication: Off label use
     Route: 048
  193. LANSOPRAZOLE [Concomitant]
     Active Substance: LANSOPRAZOLE
     Indication: Intentional product misuse
     Route: 048
  194. LANSOPRAZOLE [Concomitant]
     Active Substance: LANSOPRAZOLE
     Indication: Gastric pH decreased
     Route: 065
  195. LANSOPRAZOLE [Concomitant]
     Active Substance: LANSOPRAZOLE
     Indication: Antacid therapy
     Route: 048
  196. LANSOPRAZOLE [Concomitant]
     Active Substance: LANSOPRAZOLE
     Route: 065
  197. LANSOPRAZOLE [Concomitant]
     Active Substance: LANSOPRAZOLE
     Route: 042
  198. LANSOPRAZOLE [Concomitant]
     Active Substance: LANSOPRAZOLE
     Route: 065
  199. LANSOPRAZOLE [Concomitant]
     Active Substance: LANSOPRAZOLE
     Route: 065
  200. LANSOPRAZOLE [Concomitant]
     Active Substance: LANSOPRAZOLE
     Route: 048
  201. LANSOPRAZOLE [Concomitant]
     Active Substance: LANSOPRAZOLE
     Route: 048

REACTIONS (103)
  - Abdominal distension [Fatal]
  - Abdominal pain [Fatal]
  - Activated partial thromboplastin time prolonged [Fatal]
  - Anaemia [Fatal]
  - Analgesic therapy [Fatal]
  - Antacid therapy [Fatal]
  - Aortic stenosis [Fatal]
  - Appendicitis [Fatal]
  - Appendicolith [Fatal]
  - Ascites [Fatal]
  - Aspartate aminotransferase increased [Fatal]
  - Bacterial infection [Fatal]
  - Blood cholesterol increased [Fatal]
  - Blood phosphorus increased [Fatal]
  - Blood calcium increased [Fatal]
  - Blood creatinine increased [Fatal]
  - Chronic obstructive pulmonary disease [Fatal]
  - End stage renal disease [Fatal]
  - Gout [Fatal]
  - Hyperlipidaemia [Fatal]
  - Hyperphosphataemia [Fatal]
  - Hypertension [Fatal]
  - Hyponatraemia [Fatal]
  - Liver function test increased [Fatal]
  - Lower respiratory tract infection [Fatal]
  - Musculoskeletal stiffness [Fatal]
  - Oedema peripheral [Fatal]
  - Pleural effusion [Fatal]
  - Sleep disorder therapy [Fatal]
  - Total lung capacity decreased [Fatal]
  - Troponin increased [Fatal]
  - Ulcer [Fatal]
  - Ventricular fibrillation [Fatal]
  - Abdominal pain upper [Fatal]
  - Anticoagulant therapy [Fatal]
  - Aspiration [Fatal]
  - Asthenia [Fatal]
  - Asthma [Fatal]
  - Breath sounds abnormal [Fatal]
  - Benign prostatic hyperplasia [Fatal]
  - Congenital hiatus hernia [Fatal]
  - Bronchiectasis [Fatal]
  - Bronchopulmonary aspergillosis allergic [Fatal]
  - Cardiogenic shock [Fatal]
  - Condition aggravated [Fatal]
  - Full blood count abnormal [Fatal]
  - Constipation [Fatal]
  - Coronary artery disease [Fatal]
  - Cough [Fatal]
  - Diabetes mellitus [Fatal]
  - Drug hypersensitivity [Fatal]
  - Dry mouth [Fatal]
  - Dyspnoea [Fatal]
  - Fatigue [Fatal]
  - Malignant melanoma stage 0 [Fatal]
  - Gastrooesophageal reflux disease [Fatal]
  - General physical health deterioration [Fatal]
  - Haemoptysis [Fatal]
  - Headache [Fatal]
  - Hypophosphataemia [Fatal]
  - Hypoxia [Fatal]
  - Iron deficiency [Fatal]
  - Joint injury [Fatal]
  - Lung opacity [Fatal]
  - Pulmonary fibrosis [Fatal]
  - Micturition urgency [Fatal]
  - Multiple organ dysfunction syndrome [Fatal]
  - Myasthenia gravis [Fatal]
  - Nausea [Fatal]
  - Neuralgia [Fatal]
  - Obstructive airways disorder [Fatal]
  - Pain [Fatal]
  - Pleuritic pain [Fatal]
  - Pneumonia [Fatal]
  - Pulmonary fibrosis [Fatal]
  - Pulmonary mass [Fatal]
  - Pyrexia [Fatal]
  - Wheezing [Fatal]
  - Rales [Fatal]
  - Sepsis [Fatal]
  - Somnolence [Fatal]
  - Sputum discoloured [Fatal]
  - Stress [Fatal]
  - Swelling [Fatal]
  - Thrombosis [Fatal]
  - Tremor [Fatal]
  - Tremor [Fatal]
  - Sleep disorder [Fatal]
  - Upper respiratory tract infection [Fatal]
  - Vomiting [Fatal]
  - Pulmonary embolism [Fatal]
  - Blood test abnormal [Fatal]
  - Blood uric acid increased [Fatal]
  - Death [Fatal]
  - Drug ineffective [Fatal]
  - Product dose omission issue [Recovered/Resolved]
  - Product use in unapproved indication [Recovered/Resolved]
  - Inappropriate schedule of product administration [Recovered/Resolved]
  - Incorrect route of product administration [Recovered/Resolved]
  - Off label use [Recovered/Resolved]
  - Intentional product use issue [Recovered/Resolved]
  - Intentional product misuse [Recovered/Resolved]
  - Drug intolerance [Recovered/Resolved]
